FAERS Safety Report 19163643 (Version 1)
Quarter: 2021Q2

REPORT INFORMATION
  Report Type: Spontaneous
  Country: FR (occurrence: FR)
  Receive Date: 20210421
  Receipt Date: 20210421
  Transmission Date: 20210717
  Serious: Yes (Hospitalization)
  Sender: FDA-Public Use
  Company Number: FR-MACLEODS PHARMACEUTICALS US LTD-MAC2021030854

PATIENT

DRUGS (6)
  1. GANCICLOVIR. [Suspect]
     Active Substance: GANCICLOVIR
     Indication: CYTOMEGALOVIRUS CHORIORETINITIS
     Dosage: 2 MILLIGRAM
  2. GANCICLOVIR. [Suspect]
     Active Substance: GANCICLOVIR
     Indication: NECROTISING RETINITIS
     Dosage: 5 MILLIGRAM/KILOGRAM, BID
     Route: 042
  3. TRIAMCINOLONE ACETONIDE. [Suspect]
     Active Substance: TRIAMCINOLONE ACETONIDE
     Indication: NEOVASCULAR AGE-RELATED MACULAR DEGENERATION
     Dosage: 20 MILLIGRAM, INJECTION
     Dates: start: 200601
  4. VALGANCICLOVIR. [Suspect]
     Active Substance: VALGANCICLOVIR
     Indication: CYTOMEGALOVIRUS CHORIORETINITIS
     Dosage: 900 MILLIGRAM, BID
     Route: 048
     Dates: end: 200607
  5. VALGANCICLOVIR. [Suspect]
     Active Substance: VALGANCICLOVIR
     Indication: NECROTISING RETINITIS
  6. VERTEPORFIN [Concomitant]
     Active Substance: VERTEPORFIN
     Indication: NEOVASCULAR AGE-RELATED MACULAR DEGENERATION
     Dosage: UNK
     Route: 065

REACTIONS (3)
  - Necrotising retinitis [Recovered/Resolved]
  - Rhegmatogenous retinal detachment [Recovered/Resolved]
  - Cytomegalovirus chorioretinitis [Recovered/Resolved]

NARRATIVE: CASE EVENT DATE: 200604
